FAERS Safety Report 8194505-8 (Version None)
Quarter: 2012Q1

REPORT INFORMATION
  Report Type: 
  Country: None (occurrence: None)
  Receive Date: 20120308
  Receipt Date: 20110418
  Transmission Date: 20120608
  Serious: No
  Sender: FDA-Public Use
  Company Number: US-GLAXOSMITHKLINE-A0923307A

PATIENT
  Age: 35 Year
  Sex: Female

DRUGS (1)
  1. NICORETTE [Suspect]
     Indication: EX-TOBACCO USER

REACTIONS (4)
  - ORAL MUCOSAL EXFOLIATION [None]
  - DRUG ADMINISTRATION ERROR [None]
  - THERMAL BURN [None]
  - GINGIVAL PAIN [None]
